FAERS Safety Report 4444656-6 (Version None)
Quarter: 2004Q3

REPORT INFORMATION
  Report Type: 
  Country: None (occurrence: None)
  Receive Date: 20040903
  Receipt Date: 20040823
  Transmission Date: 20050211
  Serious: Yes (Life-Threatening)
  Sender: FDA-Public Use
  Company Number: GBR-2004-0001219

PATIENT
  Age: 65 Year
  Sex: Male

DRUGS (3)
  1. MORPHINE SULFATE [Suspect]
     Dosage: 12 TABLET, DAILY, ORAL
     Route: 048
     Dates: end: 20040707
  2. DURAGESIC [Suspect]
     Dosage: 25 MCG/HR, TRANSDERMAL
     Route: 062
     Dates: start: 20040702, end: 20040707
  3. DURAGESIC [Suspect]
     Dosage: 25 MCG/HR, TRANSDERMAL
     Route: 062
     Dates: end: 20040707

REACTIONS (2)
  - DRUG INTERACTION [None]
  - HALLUCINATION [None]
